FAERS Safety Report 19041459 (Version 3)
Quarter: 2024Q4

REPORT INFORMATION
  Report Type: Spontaneous
  Country: CA (occurrence: CA)
  Receive Date: 20210322
  Receipt Date: 20241122
  Transmission Date: 20250115
  Serious: Yes (Hospitalization, Other)
  Sender: ALEXION PHARMACEUTICALS
  Company Number: 2021A146739

PATIENT
  Age: 82 Year

DRUGS (24)
  1. BENRALIZUMAB [Suspect]
     Active Substance: BENRALIZUMAB
     Indication: Asthma
     Route: 065
  2. BENRALIZUMAB [Suspect]
     Active Substance: BENRALIZUMAB
  3. BENRALIZUMAB [Suspect]
     Active Substance: BENRALIZUMAB
     Route: 065
  4. BENRALIZUMAB [Suspect]
     Active Substance: BENRALIZUMAB
  5. DEFLAZACORT [Suspect]
     Active Substance: DEFLAZACORT
     Indication: Asthma
     Dosage: 30 MILLIGRAM, UNK, FREQUENCY: UNK
  6. DEFLAZACORT [Suspect]
     Active Substance: DEFLAZACORT
     Dosage: 30 MILLIGRAM, UNK, FREQUENCY: UNK
     Route: 065
  7. FLUTICASONE [Suspect]
     Active Substance: FLUTICASONE
     Indication: Asthma
     Dosage: 200 MICROGRAM, UNK, FREQUENCY: UNK
     Route: 065
  8. FLUTICASONE [Suspect]
     Active Substance: FLUTICASONE
     Dosage: 200 MICROGRAM, UNK, FREQUENCY: UNK
  9. FLUTICASONE [Suspect]
     Active Substance: FLUTICASONE
     Dosage: 200 MICROGRAM, UNK, FREQUENCY: UNK
     Route: 065
  10. FLUTICASONE [Suspect]
     Active Substance: FLUTICASONE
     Dosage: 200 MICROGRAM, UNK, FREQUENCY: UNK
  11. METHYLPREDNISOLONE [Suspect]
     Active Substance: METHYLPREDNISOLONE
     Indication: Asthma
     Route: 065
  12. METHYLPREDNISOLONE [Suspect]
     Active Substance: METHYLPREDNISOLONE
  13. METHYLPREDNISOLONE [Suspect]
     Active Substance: METHYLPREDNISOLONE
     Route: 065
  14. METHYLPREDNISOLONE [Suspect]
     Active Substance: METHYLPREDNISOLONE
  15. ALBUTEROL [Suspect]
     Active Substance: ALBUTEROL
     Indication: Asthma
     Route: 065
  16. ALBUTEROL [Suspect]
     Active Substance: ALBUTEROL
  17. ALBUTEROL [Suspect]
     Active Substance: ALBUTEROL
     Route: 065
  18. ALBUTEROL [Suspect]
     Active Substance: ALBUTEROL
  19. TIOTROPIUM [Concomitant]
     Active Substance: TIOTROPIUM
     Indication: Asthma
  20. TIOTROPIUM [Concomitant]
     Active Substance: TIOTROPIUM
     Route: 065
  21. AZITHROMYCIN [Concomitant]
     Active Substance: AZITHROMYCIN
     Indication: Asthma
  22. AZITHROMYCIN [Concomitant]
     Active Substance: AZITHROMYCIN
     Route: 065
  23. VILANTEROL [Concomitant]
     Active Substance: VILANTEROL
     Indication: Asthma
     Dosage: 25 MILLIGRAM, UNK, FREQUENCY: UNK
  24. VILANTEROL [Concomitant]
     Active Substance: VILANTEROL
     Dosage: 25 MILLIGRAM, UNK, FREQUENCY: UNK
     Route: 065

REACTIONS (3)
  - Pneumocystis jirovecii infection [Recovering/Resolving]
  - Asthma [Recovering/Resolving]
  - Drug ineffective [Recovering/Resolving]
